FAERS Safety Report 14328232 (Version 2)
Quarter: 2018Q1

REPORT INFORMATION
  Report Type: Spontaneous
  Country: JP (occurrence: JP)
  Receive Date: 20171227
  Receipt Date: 20180208
  Transmission Date: 20180509
  Serious: Yes (Hospitalization, Other)
  Sender: FDA-Public Use
  Company Number: JP-PFIZER INC-2017495830

PATIENT
  Age: 17 Year
  Sex: Female

DRUGS (5)
  1. ZITHROMAC 250MG [Suspect]
     Active Substance: AZITHROMYCIN DIHYDRATE
     Indication: UPPER RESPIRATORY TRACT INFLAMMATION
     Dosage: UNK
     Route: 048
     Dates: start: 20171008
  2. CALONAL [Suspect]
     Active Substance: ACETAMINOPHEN
     Indication: UPPER RESPIRATORY TRACT INFLAMMATION
     Dosage: UNK
     Route: 048
     Dates: start: 20171008
  3. TRANEXAMIC ACID. [Suspect]
     Active Substance: TRANEXAMIC ACID
     Indication: UPPER RESPIRATORY TRACT INFLAMMATION
     Dosage: UNK
     Route: 048
     Dates: start: 20171008
  4. TRAMCET [Suspect]
     Active Substance: ACETAMINOPHEN\TRAMADOL
     Dosage: UNK
  5. BENZA BLOCK L [Suspect]
     Active Substance: CAFFEINE\CHLORPHENIRAMINE\DIHYDROCODEINE\IBUPROFEN\PSEUDOEPHEDRINE
     Dosage: UNK

REACTIONS (4)
  - Autoimmune hepatitis [Not Recovered/Not Resolved]
  - Drug-induced liver injury [Recovering/Resolving]
  - Antinuclear antibody [Unknown]
  - Cholestasis [Unknown]

NARRATIVE: CASE EVENT DATE: 20171027
